FAERS Safety Report 5366373-0 (Version None)
Quarter: 2007Q2

REPORT INFORMATION
  Report Type: 
  Country: None (occurrence: None)
  Receive Date: 20070622
  Receipt Date: 20070530
  Transmission Date: 20071010
  Serious: Yes (Other)
  Sender: FDA-Public Use
  Company Number: US-BAYER-200612886BCC

PATIENT

DRUGS (2)
  1. ASPIRIN TAB [Suspect]
     Indication: ANTICOAGULANT THERAPY
     Dosage: TOTAL DAILY DOSE: 81 MG  UNIT DOSE: 81 MG
     Route: 064
     Dates: start: 20051001
  2. PRENATAL VITAMINS [Concomitant]
     Indication: PRENATAL CARE
     Route: 064

REACTIONS (2)
  - GENERAL PHYSICAL HEALTH DETERIORATION [None]
  - UNEVALUABLE EVENT [None]
